FAERS Safety Report 11056979 (Version 1)
Quarter: 2015Q2

REPORT INFORMATION
  Report Type: Spontaneous
  Country: US (occurrence: None)
  Receive Date: 20150420
  Receipt Date: 20150420
  Transmission Date: 20150821
  Serious: Yes (Other)
  Sender: FDA-Public Use
  Company Number: AEGR001074

PATIENT
  Age: 58 Year
  Sex: Female

DRUGS (1)
  1. JUXTAPID [Suspect]
     Active Substance: LOMITAPIDE MESYLATE
     Indication: TYPE IIA HYPERLIPIDAEMIA
     Route: 048
     Dates: end: 20141230

REACTIONS (2)
  - Alanine aminotransferase increased [None]
  - Onychoclasis [None]

NARRATIVE: CASE EVENT DATE: 201412
